FAERS Safety Report 14851340 (Version 1)
Quarter: 2018Q2

REPORT INFORMATION
  Report Type: Spontaneous
  Country: JP (occurrence: JP)
  Receive Date: 20180507
  Receipt Date: 20180507
  Transmission Date: 20180711
  Serious: Yes (Death, Other)
  Sender: FDA-Public Use
  Company Number: JP-ROCHE-2118111

PATIENT
  Age: 4 Decade
  Sex: Male

DRUGS (3)
  1. ROMIPLATE [Concomitant]
     Active Substance: ROMIPLOSTIM
     Indication: THROMBOCYTOPENIC PURPURA
     Route: 058
  2. PREDNISOLONE SODIUM SUCCINATE [Concomitant]
     Active Substance: PREDNISOLONE SODIUM SUCCINATE
     Indication: THROMBOCYTOPENIC PURPURA
     Route: 065
  3. RITUXAN [Suspect]
     Active Substance: RITUXIMAB
     Indication: THROMBOCYTOPENIC PURPURA
     Route: 041

REACTIONS (4)
  - Septic shock [Fatal]
  - Purpura fulminans [Unknown]
  - Disseminated intravascular coagulation [Fatal]
  - Multiple organ dysfunction syndrome [Fatal]
